FAERS Safety Report 12457686 (Version 1)
Quarter: 2016Q2

REPORT INFORMATION
  Report Type: Spontaneous
  Country: US (occurrence: US)
  Receive Date: 20160610
  Receipt Date: 20160610
  Transmission Date: 20160815
  Serious: Yes (Hospitalization)
  Sender: FDA-Public Use
  Company Number: US-RELYPSA-RLY2016000912

PATIENT

DRUGS (27)
  1. VELTASSA [Suspect]
     Active Substance: PATIROMER
     Indication: HYPERKALAEMIA
     Dosage: 8.4 G, QD
     Route: 048
     Dates: start: 20160506
  2. ACETAMINOPHEN\HYDROCODONE BITARTRATE [Concomitant]
     Active Substance: ACETAMINOPHEN\HYDROCODONE BITARTRATE
  3. ROZEREM [Concomitant]
     Active Substance: RAMELTEON
  4. ALLOPURINOL. [Concomitant]
     Active Substance: ALLOPURINOL
  5. IPRATROPIUM BROMIDE. [Concomitant]
     Active Substance: IPRATROPIUM BROMIDE
  6. METOPROLOL TARTRATE. [Concomitant]
     Active Substance: METOPROLOL TARTRATE
  7. PHENYTOIN SODIUM. [Concomitant]
     Active Substance: PHENYTOIN SODIUM
  8. SINGULAIR [Concomitant]
     Active Substance: MONTELUKAST SODIUM
  9. NITRO-DUR [Concomitant]
     Active Substance: NITROGLYCERIN
  10. FOLIC ACID. [Concomitant]
     Active Substance: FOLIC ACID
  11. HUMALOG [Concomitant]
     Active Substance: INSULIN LISPRO
  12. MORPHINE SULFATE. [Concomitant]
     Active Substance: MORPHINE SULFATE
  13. PLAVIX [Concomitant]
     Active Substance: CLOPIDOGREL BISULFATE
  14. PROMETHAZINE HCL [Concomitant]
     Active Substance: PROMETHAZINE HYDROCHLORIDE
  15. VIMPAT [Concomitant]
     Active Substance: LACOSAMIDE
  16. AMLODIPINE [Concomitant]
     Active Substance: AMLODIPINE BESYLATE
  17. ASPIRIN                            /00002701/ [Concomitant]
     Active Substance: ASPIRIN
  18. LASIX [Concomitant]
     Active Substance: FUROSEMIDE
  19. PHENYTEK [Concomitant]
     Active Substance: PHENYTOIN SODIUM
  20. SODIUM BICARBONATE. [Concomitant]
     Active Substance: SODIUM BICARBONATE
  21. NYSTATIN. [Concomitant]
     Active Substance: NYSTATIN
  22. SERTRALINE HCL [Concomitant]
     Active Substance: SERTRALINE HYDROCHLORIDE
  23. DILANTIN [Concomitant]
     Active Substance: PHENYTOIN
  24. KEPPRA [Concomitant]
     Active Substance: LEVETIRACETAM
  25. OMEPRAZOLE. [Concomitant]
     Active Substance: OMEPRAZOLE
  26. LANTUS [Concomitant]
     Active Substance: INSULIN GLARGINE
  27. NITROSTAT [Concomitant]
     Active Substance: NITROGLYCERIN

REACTIONS (1)
  - Cardiac failure congestive [Unknown]

NARRATIVE: CASE EVENT DATE: 20160528
